FAERS Safety Report 8771547 (Version 1)
Quarter: 2012Q4

REPORT INFORMATION
  Report Type: 
  Country: US (occurrence: US)
  Receive Date: 20120906
  Receipt Date: 20120906
  Transmission Date: 20130627
  Serious: Yes (Hospitalization)
  Sender: FDA-Public Use
  Company Number: US-CELGENEUS-163-21880-12083393

PATIENT
  Sex: Male

DRUGS (2)
  1. REVLIMID [Suspect]
     Indication: MYELODYSPLASTIC SYNDROME
     Dosage: 5 Milligram
     Route: 048
     Dates: start: 20120322
  2. REVLIMID [Suspect]
     Dosage: 2.5 Milligram
     Route: 048
     Dates: start: 201207

REACTIONS (1)
  - Paralysis [Unknown]
